FAERS Safety Report 4457424-6 (Version None)
Quarter: 2004Q3

REPORT INFORMATION
  Report Type: 
  Country: None (occurrence: None)
  Receive Date: 20040922
  Receipt Date: 20040913
  Transmission Date: 20050211
  Serious: Yes (Death, Hospitalization, Other)
  Sender: FDA-Public Use
  Company Number: US-JNJFOC-20040903697

PATIENT
  Age: 18 Year
  Sex: Female

DRUGS (1)
  1. EXTRA STRENGTH TYLENOL [Suspect]
     Indication: SUICIDE ATTEMPT
     Dosage: ORAL
     Route: 048

REACTIONS (24)
  - ALANINE AMINOTRANSFERASE INCREASED [None]
  - ANURIA [None]
  - ASPARTATE AMINOTRANSFERASE INCREASED [None]
  - BLOOD BICARBONATE DECREASED [None]
  - BLOOD CREATINE INCREASED [None]
  - BLOOD GLUCOSE DECREASED [None]
  - BLOOD PH DECREASED [None]
  - BLOOD PRESSURE DIASTOLIC DECREASED [None]
  - BLOOD UREA DECREASED [None]
  - CARDIAC ARREST [None]
  - COAGULOPATHY [None]
  - COMA ACIDOTIC [None]
  - DEPRESSED LEVEL OF CONSCIOUSNESS [None]
  - EMPHYSEMA [None]
  - HAEMODIALYSIS [None]
  - HEPATORENAL FAILURE [None]
  - HYPOTENSION [None]
  - OVERDOSE [None]
  - PCO2 DECREASED [None]
  - PNEUMOMEDIASTINUM [None]
  - PO2 INCREASED [None]
  - PROTHROMBIN TIME PROLONGED [None]
  - URINE OUTPUT DECREASED [None]
  - VOMITING [None]
